FAERS Safety Report 20737979 (Version 6)
Quarter: 2025Q1

REPORT INFORMATION
  Report Type: Spontaneous
  Country: US (occurrence: None)
  Receive Date: 20220422
  Receipt Date: 20250225
  Transmission Date: 20250408
  Serious: Yes (Hospitalization, Other)
  Sender: MDD OPERATIONS
  Company Number: US-MDD US Operations-MDD202204-000842

PATIENT
  Age: 56 Year
  Sex: Male

DRUGS (4)
  1. APOKYN [Suspect]
     Active Substance: APOMORPHINE HYDROCHLORIDE
     Indication: Parkinson^s disease
     Route: 058
  2. APOKYN [Suspect]
     Active Substance: APOMORPHINE HYDROCHLORIDE
     Indication: On and off phenomenon
  3. APOKYN [Suspect]
     Active Substance: APOMORPHINE HYDROCHLORIDE
     Dates: start: 20191129
  4. APOKYN [Suspect]
     Active Substance: APOMORPHINE HYDROCHLORIDE
     Dosage: (5 X 3ML)
     Route: 058
     Dates: start: 201911

REACTIONS (11)
  - Intervertebral disc operation [Not Recovered/Not Resolved]
  - Parkinson^s disease [Not Recovered/Not Resolved]
  - Psychotic disorder [Unknown]
  - Rash [Unknown]
  - Cystitis [Unknown]
  - Blood pressure increased [Unknown]
  - Somnolence [Not Recovered/Not Resolved]
  - Hallucination [Unknown]
  - Adverse drug reaction [Unknown]
  - Therapy cessation [Unknown]
  - Expired product administered [Unknown]

NARRATIVE: CASE EVENT DATE: 20210101
